FAERS Safety Report 7502540-5 (Version None)
Quarter: 2011Q1

REPORT INFORMATION
  Report Type: 
  Country: None (occurrence: None)
  Receive Date: 20110318
  Receipt Date: 20100520
  Transmission Date: 20110831
  Serious: Yes (Other)
  Sender: FDA-Public Use
  Company Number: 2010SP028478

PATIENT
  Age: 62 Year
  Sex: Male

DRUGS (1)
  1. PEG-INTRON [Suspect]
     Indication: HEPATITIS C
     Dosage: 180 MCG;QW
     Dates: start: 20091223, end: 20100416

REACTIONS (2)
  - HAEMOGLOBIN DECREASED [None]
  - FATIGUE [None]
